FAERS Safety Report 6789947-9 (Version None)
Quarter: 2010Q2

REPORT INFORMATION
  Report Type: 
  Country: None (occurrence: None)
  Receive Date: 20100624
  Receipt Date: 20100624
  Transmission Date: 20101027
  Serious: Yes (Other)
  Sender: FDA-Public Use
  Company Number: US-JNJFOC-20100601204

PATIENT
  Age: 82 Year
  Sex: Male

DRUGS (7)
  1. LEVOFLOXACIN [Suspect]
     Indication: DIVERTICULITIS
     Route: 048
  2. NADOLOL [Concomitant]
     Route: 065
  3. COUMADIN [Concomitant]
     Route: 065
  4. ALLOPURINOL [Concomitant]
     Route: 065
  5. ACCUPRIL [Concomitant]
     Route: 065
  6. HYDROCHLOROTHIAZIDE [Concomitant]
     Route: 065
  7. CIPROFLOXACIN [Concomitant]
     Indication: DIVERTICULITIS
     Route: 042

REACTIONS (1)
  - ALVEOLITIS ALLERGIC [None]
